FAERS Safety Report 10781415 (Version 1)
Quarter: 2015Q1

REPORT INFORMATION
  Report Type: Spontaneous
  Country: US (occurrence: None)
  Receive Date: 20150209
  Receipt Date: 20150209
  Transmission Date: 20150721
  Serious: Yes (Death)
  Sender: FDA-Public Use
  Company Number: None

PATIENT
  Age: 76 Year
  Sex: Male
  Weight: 79.38 kg

DRUGS (2)
  1. VALTREX 1 GM GENERIC 1 GRAM WPL 3248 *ON LABEL [Suspect]
     Active Substance: VALACYCLOVIR HYDROCHLORIDE
     Indication: HERPES ZOSTER
     Dates: start: 20130222
  2. METHYLPREDNISOLONE TABLETS, USP 4 MG QUALITEST [Suspect]
     Active Substance: METHYLPREDNISOLONE

REACTIONS (3)
  - Cardiac failure [None]
  - Sudden death [None]
  - Feeling abnormal [None]

NARRATIVE: CASE EVENT DATE: 20130222
